FAERS Safety Report 6762266-2 (Version None)
Quarter: 2010Q2

REPORT INFORMATION
  Report Type: 
  Country: None (occurrence: None)
  Receive Date: 20100609
  Receipt Date: 20100602
  Transmission Date: 20101027
  Serious: Yes (Other)
  Sender: FDA-Public Use
  Company Number: US-TEVA-234917USA

PATIENT
  Sex: Male
  Weight: 79 kg

DRUGS (15)
  1. CLARAVIS [Suspect]
     Indication: ACNE
     Route: 048
     Dates: end: 20100508
  2. CETIRIZINE HYDROCHLORIDE [Concomitant]
  3. AEROCHAMBER MV [Concomitant]
  4. SERETIDE [Concomitant]
     Dosage: 115/21, 2 INH Q 12 HOURS
     Route: 055
  5. SALBUTAMOL [Concomitant]
     Dosage: 2 PUFFS QID
     Route: 055
  6. BUDESONIDE [Concomitant]
     Dosage: 2 SPRAYS QD
  7. MONTELUKAST [Concomitant]
     Dosage: HS
  8. TAZAROTENE [Concomitant]
     Dosage: APP AA QD
     Route: 061
  9. IMIQUIMOD [Concomitant]
  10. SAL ACID 50%/ UREA 20% [Concomitant]
  11. BIAFINE [Concomitant]
  12. EPIDUO [Concomitant]
     Dosage: AT BEDTIME
  13. PATANASE [Concomitant]
     Dosage: 2 SPRAYS BID
  14. AUGMENTIN '125' [Concomitant]
  15. PREDNISONE [Concomitant]

REACTIONS (3)
  - AGGRESSION [None]
  - MOOD SWINGS [None]
  - SUICIDAL IDEATION [None]
